FAERS Safety Report 11929410 (Version 1)
Quarter: 2016Q1

REPORT INFORMATION
  Report Type: Spontaneous
  Country: CA (occurrence: CA)
  Receive Date: 20160120
  Receipt Date: 20160120
  Transmission Date: 20160526
  Serious: Yes (Other)
  Sender: FDA-Public Use
  Company Number: CA-TEVA-627111ACC

PATIENT
  Age: 64 Year
  Sex: Male
  Weight: 77 kg

DRUGS (1)
  1. AZILECT [Suspect]
     Active Substance: RASAGILINE MESYLATE
     Indication: PARKINSON^S DISEASE
     Dosage: 4 DOSAGE FORMS DAILY;
     Route: 048

REACTIONS (2)
  - Hallucination [Unknown]
  - Anxiety [Unknown]
